FAERS Safety Report 22537489 (Version 1)
Quarter: 2023Q2

REPORT INFORMATION
  Report Type: Spontaneous
  Country: FR (occurrence: FR)
  Receive Date: 20230608
  Receipt Date: 20230608
  Transmission Date: 20230722
  Serious: Yes (Other)
  Sender: FDA-Public Use
  Company Number: FR-AstraZeneca-2023A119113

PATIENT
  Sex: Female

DRUGS (3)
  1. ELIQUIS [Interacting]
     Active Substance: APIXABAN
     Indication: Product used for unknown indication
  2. LYNPARZA [Interacting]
     Active Substance: OLAPARIB
     Indication: Pancreatic carcinoma metastatic
     Dosage: 2 TABLETS IN THE MORNING, 2 TABLETS IN THE EVENING
     Route: 048
     Dates: start: 20221201
  3. LYNPARZA [Interacting]
     Active Substance: OLAPARIB
     Indication: Breast cancer

REACTIONS (2)
  - Tumour marker increased [Unknown]
  - Drug interaction [Unknown]
